FAERS Safety Report 18480461 (Version 1)
Quarter: 2020Q4

REPORT INFORMATION
  Report Type: Spontaneous
  Country: GB (occurrence: GB)
  Receive Date: 20201109
  Receipt Date: 20201109
  Transmission Date: 20210114
  Serious: Yes (Hospitalization, Other)
  Sender: FDA-Public Use
  Company Number: GB-PFIZER INC-2020430410

PATIENT
  Age: 71 Year
  Sex: Male

DRUGS (1)
  1. DOCETAXEL. [Suspect]
     Active Substance: DOCETAXEL
     Indication: PROSTATE CANCER
     Dosage: 75 MG/M2, CYCLIC, QCY
     Route: 042
     Dates: start: 20190511, end: 20190511

REACTIONS (20)
  - Musculoskeletal discomfort [Unknown]
  - Groin pain [Unknown]
  - Retroperitoneal lymphadenopathy [Unknown]
  - Pyrexia [Recovered/Resolved]
  - Malaise [Unknown]
  - Sepsis [Unknown]
  - Pallor [Unknown]
  - Fatigue [Unknown]
  - Decreased appetite [Unknown]
  - Flank pain [Recovered/Resolved]
  - Hydronephrosis [Unknown]
  - Nodular rash [Unknown]
  - Haematuria [Unknown]
  - Lymphadenopathy [Unknown]
  - Abdominal pain [Recovered/Resolved]
  - Constipation [Recovered/Resolved]
  - Eructation [Unknown]
  - Swelling [Unknown]
  - Rash erythematous [Unknown]
  - Dyspepsia [Unknown]

NARRATIVE: CASE EVENT DATE: 20191125
